FAERS Safety Report 6056653-8 (Version None)
Quarter: 2009Q1

REPORT INFORMATION
  Report Type: 
  Country: None (occurrence: None)
  Receive Date: 20090129
  Receipt Date: 20090117
  Transmission Date: 20090719
  Serious: Yes (Other)
  Sender: FDA-Public Use
  Company Number: US-PFIZER INC-2008092666

PATIENT
  Age: 14 Year
  Sex: Female

DRUGS (2)
  1. XANAX [Suspect]
     Route: 048
  2. ALCOHOL [Suspect]

REACTIONS (2)
  - AMNESIA [None]
  - VICTIM OF SEXUAL ABUSE [None]
